FAERS Safety Report 11687109 (Version 5)
Quarter: 2020Q3

REPORT INFORMATION
  Report Type: Report from Study
  Country: US (occurrence: US)
  Receive Date: 20151030
  Receipt Date: 20160525
  Transmission Date: 20201105
  Serious: Yes (Hospitalization)
  Sender: FDA-Public Use
  Company Number: US-JNJFOC-20151023642

PATIENT
  Age: 48 Year
  Sex: Female
  Weight: 138.4 kg

DRUGS (13)
  1. MEDI4736 [Suspect]
     Active Substance: DURVALUMAB
     Indication: NEOPLASM
     Route: 042
     Dates: start: 20151103
  2. VITAMIN B COMPLEX [Concomitant]
     Active Substance: CYANOCOBALAMIN\DEXPANTHENOL\NIACINAMIDE\PYRIDOXINE HYDROCHLORIDE\RIBOFLAVIN 5^-PHOSPHATE SODIUM\THIAMINE HYDROCHLORIDE\VITAMIN B COMPLEX
     Indication: SUPPLEMENTATION THERAPY
     Dosage: 100 MCG
     Route: 048
     Dates: start: 201407
  3. BIOTIN [Concomitant]
     Active Substance: BIOTIN
     Indication: SUPPLEMENTATION THERAPY
     Dosage: 5000 MCG
     Route: 048
     Dates: start: 201407
  4. VITAMIN D3 [Concomitant]
     Active Substance: CHOLECALCIFEROL
     Indication: SUPPLEMENTATION THERAPY
     Route: 048
     Dates: start: 201507
  5. CIPROFLOXACIN. [Concomitant]
     Active Substance: CIPROFLOXACIN
     Indication: CYSTITIS
     Route: 048
     Dates: start: 20151018
  6. IBRUTINIB [Suspect]
     Active Substance: IBRUTINIB
     Indication: NEOPLASM
     Route: 048
     Dates: start: 20151006, end: 20151019
  7. IBRUTINIB [Suspect]
     Active Substance: IBRUTINIB
     Indication: NEOPLASM
     Route: 048
     Dates: start: 20151103, end: 20151104
  8. CALCIUM [Concomitant]
     Active Substance: CALCIUM
     Indication: SUPPLEMENTATION THERAPY
     Route: 048
     Dates: start: 201407
  9. IBUPROFEN. [Concomitant]
     Active Substance: IBUPROFEN
     Indication: ARTHRALGIA
     Route: 048
     Dates: start: 20151010
  10. IBRUTINIB [Suspect]
     Active Substance: IBRUTINIB
     Indication: NEOPLASM
     Route: 048
     Dates: start: 20151107, end: 20151110
  11. IBRUTINIB [Suspect]
     Active Substance: IBRUTINIB
     Indication: NEOPLASM
     Route: 048
     Dates: start: 20151117
  12. LORAZEPAM. [Concomitant]
     Active Substance: LORAZEPAM
     Indication: ANXIETY
     Route: 048
     Dates: start: 201407
  13. MEDI4736 [Suspect]
     Active Substance: DURVALUMAB
     Indication: NEOPLASM
     Route: 042
     Dates: start: 20151006, end: 20151006

REACTIONS (2)
  - Hypotension [Recovered/Resolved]
  - Rash maculo-papular [Recovered/Resolved]

NARRATIVE: CASE EVENT DATE: 20151019
